FAERS Safety Report 26023200 (Version 1)
Quarter: 2025Q4

REPORT INFORMATION
  Report Type: Spontaneous
  Country: BR (occurrence: BR)
  Receive Date: 20251110
  Receipt Date: 20251110
  Transmission Date: 20260117
  Serious: Yes (Death)
  Sender: BEIGENE
  Company Number: BR-BEIGENE-BGN-2025-019289

PATIENT
  Age: 65 Year

DRUGS (2)
  1. TEVIMBRA [Suspect]
     Active Substance: TISLELIZUMAB-JSGR
     Indication: Lung neoplasm malignant
     Dosage: UNK
  2. TEVIMBRA [Suspect]
     Active Substance: TISLELIZUMAB-JSGR
     Dosage: UNK

REACTIONS (1)
  - Malignant neoplasm progression [Fatal]
